FAERS Safety Report 10057551 (Version 3)
Quarter: 2014Q2

REPORT INFORMATION
  Report Type: Spontaneous
  Country: JP (occurrence: JP)
  Receive Date: 20140404
  Receipt Date: 20140423
  Transmission Date: 20141212
  Serious: Yes (Hospitalization)
  Sender: FDA-Public Use
  Company Number: JP-ROCHE-1375425

PATIENT
  Age: 59 Year
  Sex: Female

DRUGS (14)
  1. PERJETA [Suspect]
     Indication: BREAST CANCER
     Dosage: FORM STRENGTH: 420MG/14ML
     Route: 041
     Dates: start: 20131010, end: 20131010
  2. PERJETA [Suspect]
     Route: 041
     Dates: start: 20140214, end: 20140305
  3. PERJETA [Suspect]
     Route: 041
     Dates: start: 20140110
  4. PERJETA [Suspect]
     Route: 041
     Dates: start: 20140305
  5. DOCETAXEL [Suspect]
     Indication: BREAST CANCER
     Dosage: DOSAGE IS UNCERTAIN.
     Route: 041
     Dates: start: 200706, end: 20140305
  6. DOCETAXEL [Suspect]
     Route: 041
     Dates: start: 20140110
  7. DOCETAXEL [Suspect]
     Route: 041
     Dates: start: 20140214
  8. DOCETAXEL [Suspect]
     Route: 041
     Dates: start: 20140305
  9. HERCEPTIN [Suspect]
     Indication: BREAST CANCER
     Route: 041
     Dates: start: 200706
  10. HERCEPTIN [Suspect]
     Route: 041
     Dates: start: 201003
  11. HERCEPTIN [Suspect]
     Route: 041
     Dates: start: 20140110
  12. HERCEPTIN [Suspect]
     Route: 041
     Dates: start: 201307
  13. HERCEPTIN [Suspect]
     Route: 041
     Dates: start: 20140214
  14. HERCEPTIN [Suspect]
     Route: 041
     Dates: start: 20140305

REACTIONS (5)
  - Interstitial lung disease [Recovering/Resolving]
  - Stomatitis [Unknown]
  - Metastases to lymph nodes [Unknown]
  - Hypoaesthesia [Unknown]
  - Rash [Not Recovered/Not Resolved]
